FAERS Safety Report 8102637-5 (Version None)
Quarter: 2011Q4

REPORT INFORMATION
  Report Type: 
  Country: None (occurrence: None)
  Receive Date: 20111222
  Receipt Date: 20110907
  Transmission Date: 20120403
  Serious: Yes (Hospitalization)
  Sender: FDA-Public Use
  Company Number: UTC-010023

PATIENT
  Age: 52 Year
  Sex: Female
  Weight: 85 kg

DRUGS (2)
  1. TYVASO [Suspect]
     Indication: PULMONARY ARTERIAL HYPERTENSION
     Dosage: 144 MCG (36 MCG ,4 IN 1 D), INHALATION
     Route: 055
     Dates: start: 20101218
  2. REVATIO [Concomitant]

REACTIONS (3)
  - RENAL FAILURE ACUTE [None]
  - DIARRHOEA [None]
  - DEHYDRATION [None]
